FAERS Safety Report 23028650 (Version 1)
Quarter: 2023Q4

REPORT INFORMATION
  Report Type: Spontaneous
  Country: GB (occurrence: GB)
  Receive Date: 20231004
  Receipt Date: 20231004
  Transmission Date: 20240109
  Serious: Yes (Hospitalization)
  Sender: FDA-Public Use
  Company Number: GB-MHRA-MED-202309301503393680-JGCHY

PATIENT
  Age: 36 Year
  Sex: Male
  Weight: 125 kg

DRUGS (1)
  1. LOPERAMIDE [Suspect]
     Active Substance: LOPERAMIDE
     Indication: Irritable bowel syndrome
     Dosage: UNK
     Route: 065

REACTIONS (2)
  - Pancreatitis acute [Recovering/Resolving]
  - Medication error [Unknown]
